FAERS Safety Report 6307958-4 (Version None)
Quarter: 2009Q3

REPORT INFORMATION
  Report Type: 
  Country: None (occurrence: None)
  Receive Date: 20090813
  Receipt Date: 20090804
  Transmission Date: 20100115
  Serious: Yes (Death)
  Sender: FDA-Public Use
  Company Number: US-ROCHE-642870

PATIENT
  Age: 87 Year
  Sex: Female

DRUGS (1)
  1. BONIVA [Suspect]
     Dosage: OTHER INDICATION: OSTEOPOROSIS
     Route: 042

REACTIONS (1)
  - CARDIO-RESPIRATORY ARREST [None]
